FAERS Safety Report 16201794 (Version 2)
Quarter: 2019Q4

REPORT INFORMATION
  Report Type: Spontaneous
  Country: GR (occurrence: GR)
  Receive Date: 20190416
  Receipt Date: 20191014
  Transmission Date: 20200122
  Serious: Yes (Other)
  Sender: FDA-Public Use
  Company Number: GR-SA-2019SA102007

PATIENT
  Age: 86 Year
  Sex: Female

DRUGS (5)
  1. IRBESARTAN. [Suspect]
     Active Substance: IRBESARTAN
     Indication: HYPERTENSION
  2. SIMVASTATIN. [Suspect]
     Active Substance: SIMVASTATIN
     Indication: HYPERCHOLESTEROLAEMIA
  3. NEBIVOLOL. [Suspect]
     Active Substance: NEBIVOLOL
     Indication: HYPERTENSION
  4. APIXABAN [Suspect]
     Active Substance: APIXABAN
     Indication: HYPERTENSION
  5. EPLERENONE. [Suspect]
     Active Substance: EPLERENONE
     Indication: HYPERTENSION

REACTIONS (6)
  - Lip ulceration [Unknown]
  - Pemphigoid [Recovered/Resolved]
  - Oral disorder [Unknown]
  - Gingival ulceration [Unknown]
  - Blister [Unknown]
  - Tongue ulceration [Unknown]

NARRATIVE: CASE EVENT DATE: 201811
